FAERS Safety Report 8587514-8 (Version None)
Quarter: 2012Q3

REPORT INFORMATION
  Report Type: 
  Country: None (occurrence: None)
  Receive Date: 20120810
  Receipt Date: 20120806
  Transmission Date: 20120928
  Serious: Yes (Hospitalization)
  Sender: FDA-Public Use
  Company Number: JP-AMGEN-JPNCT2012050132

PATIENT
  Age: 64 Year
  Sex: Female
  Weight: 53 kg

DRUGS (10)
  1. PEGFILGRASTIM [Suspect]
     Indication: CHEMOTHERAPY
     Dosage: 3.6 MG, UNK
     Route: 058
     Dates: start: 20110901, end: 20110922
  2. DECADRON PHOSPHATE [Concomitant]
     Indication: PROPHYLAXIS OF NAUSEA AND VOMITING
     Dosage: UNK
     Dates: start: 20110809, end: 20110923
  3. MUCOSTA [Concomitant]
     Indication: PROPHYLAXIS OF NAUSEA AND VOMITING
     Dosage: 100 MG, TID
     Route: 048
     Dates: start: 20110809
  4. RAMELTEON [Concomitant]
     Indication: PROPHYLAXIS OF NAUSEA AND VOMITING
     Dosage: UNK UNK, QD
     Dates: start: 20110809, end: 20110923
  5. CYCLOPHOSPHAMIDE [Concomitant]
     Indication: BREAST CANCER
     Dosage: 870 MG, QD
     Route: 041
     Dates: start: 20110719, end: 20110921
  6. GOSHAJINKIGAN [Concomitant]
     Indication: NEUROPATHY PERIPHERAL
     Dosage: 2.5 G, TID
     Route: 048
     Dates: start: 20110912
  7. TAXOTERE [Concomitant]
     Indication: BREAST CANCER
     Dosage: 105 MG, QD
     Route: 041
     Dates: start: 20110719, end: 20110921
  8. POLARAMINE [Concomitant]
     Indication: PROPHYLAXIS OF NAUSEA AND VOMITING
     Dosage: 10 MG, QD
     Route: 041
     Dates: start: 20110810, end: 20110921
  9. MOBIC [Concomitant]
     Indication: NEUROPATHY PERIPHERAL
     Dosage: 10 MG, QD
     Route: 048
     Dates: start: 20110928
  10. BIO-THREE [Concomitant]
     Indication: DISBACTERIOSIS
     Dosage: UNK UNK, TID
     Route: 048
     Dates: start: 20110928

REACTIONS (3)
  - PHARYNGITIS [None]
  - FEBRILE NEUTROPENIA [None]
  - ENTEROCOLITIS [None]
